FAERS Safety Report 5304790-5 (Version None)
Quarter: 2007Q2

REPORT INFORMATION
  Report Type: 
  Country: None (occurrence: None)
  Receive Date: 20070423
  Receipt Date: 20070410
  Transmission Date: 20071010
  Serious: Yes (Other)
  Sender: FDA-Public Use
  Company Number: IE-ELI_LILLY_AND_COMPANY-IE200703004132

PATIENT
  Age: 14 Year
  Sex: Male

DRUGS (2)
  1. UNKNOWN PRODUCT [Concomitant]
  2. STRATTERA [Suspect]

REACTIONS (2)
  - ABDOMINAL PAIN [None]
  - GASTRIC ULCER [None]
